FAERS Safety Report 25610527 (Version 1)
Quarter: 2025Q3

REPORT INFORMATION
  Report Type: Other
  Country: GB (occurrence: GB)
  Receive Date: 20250728
  Receipt Date: 20250728
  Transmission Date: 20251021
  Serious: Yes (Other)
  Sender: GLENMARK
  Company Number: GB-MHRA-TPP44979128C8449665YC1752509127091

PATIENT
  Age: 7 Year
  Sex: Female
  Weight: 23 kg

DRUGS (4)
  1. MONTELUKAST SODIUM [Suspect]
     Active Substance: MONTELUKAST SODIUM
     Indication: Asthma
     Dosage: 5 MILLIGRAM, QD, ...AT NIGHT
     Route: 048
     Dates: start: 20240822
  2. CHLORPHENIRAMINE MALEATE [Concomitant]
     Active Substance: CHLORPHENIRAMINE MALEATE
     Indication: Ill-defined disorder
     Route: 065
     Dates: start: 20250707
  3. ALBUTEROL [Concomitant]
     Active Substance: ALBUTEROL
     Indication: Ill-defined disorder
     Dates: start: 20240822
  4. Soprobec [Concomitant]
     Indication: Ill-defined disorder
     Dosage: UNK, BID, 1-2 PUFFS TWICE DAILY
     Route: 065
     Dates: start: 20240822

REACTIONS (5)
  - Self-injurious ideation [Not Recovered/Not Resolved]
  - Obsessive-compulsive symptom [Not Recovered/Not Resolved]
  - Anxiety [Not Recovered/Not Resolved]
  - Poor school attendance [Unknown]
  - Neuropsychological symptoms [Unknown]

NARRATIVE: CASE EVENT DATE: 20250101
